FAERS Safety Report 19297734 (Version 4)
Quarter: 2021Q3

REPORT INFORMATION
  Report Type: Spontaneous
  Country: IT (occurrence: IT)
  Receive Date: 20210524
  Receipt Date: 20210721
  Transmission Date: 20211014
  Serious: Yes (Other)
  Sender: FDA-Public Use
  Company Number: IT-JNJFOC-20210529771

PATIENT
  Age: 19 Year
  Sex: Female

DRUGS (3)
  1. MOMENDOL [Suspect]
     Active Substance: NAPROXEN SODIUM
     Indication: INTENTIONAL SELF-INJURY
     Dosage: 2.2 G(TOTAL)?ABUSE?ABUSE / MISUSE
     Route: 048
     Dates: start: 20210324, end: 20210324
  2. IBUPROFEN. [Suspect]
     Active Substance: IBUPROFEN
     Indication: INTENTIONAL SELF-INJURY
     Dosage: 4G TOTAL?ABUSE?ABUSE / MISUSE
     Route: 048
     Dates: start: 20210324, end: 20210324
  3. PARACETAMOL [Suspect]
     Active Substance: ACETAMINOPHEN
     Indication: INTENTIONAL SELF-INJURY
     Dosage: IN TOTAL., ABUSE/MISUSE
     Route: 048
     Dates: start: 20210324, end: 20210324

REACTIONS (3)
  - Abdominal pain upper [Recovering/Resolving]
  - Drug abuse [Recovering/Resolving]
  - Intentional self-injury [Recovering/Resolving]

NARRATIVE: CASE EVENT DATE: 20210325
